FAERS Safety Report 17581348 (Version 1)
Quarter: 2020Q1

REPORT INFORMATION
  Report Type: Report from Study
  Country: BR (occurrence: BR)
  Receive Date: 20200325
  Receipt Date: 20200325
  Transmission Date: 20200409
  Serious: Yes (Other)
  Sender: FDA-Public Use
  Company Number: PHHY2019BR226182

PATIENT
  Age: 38 Year
  Sex: Female
  Weight: 62 kg

DRUGS (4)
  1. GILENYA [Suspect]
     Active Substance: FINGOLIMOD HYDROCHLORIDE
     Dosage: UNK
     Route: 048
  2. GILENYA [Suspect]
     Active Substance: FINGOLIMOD HYDROCHLORIDE
     Dosage: UNK
     Route: 048
  3. GILENYA [Suspect]
     Active Substance: FINGOLIMOD HYDROCHLORIDE
     Indication: MULTIPLE SCLEROSIS
     Dosage: 0.5 MG, QD
     Route: 048
     Dates: start: 20190916
  4. INTERFERON BETA NOS [Suspect]
     Active Substance: INTERFERON BETA
     Indication: PRODUCT USED FOR UNKNOWN INDICATION
     Dosage: UNK
     Route: 065
     Dates: start: 201805, end: 20190913

REACTIONS (33)
  - Pruritus [Not Recovered/Not Resolved]
  - Gait disturbance [Not Recovered/Not Resolved]
  - Skin discolouration [Unknown]
  - Memory impairment [Unknown]
  - Visual impairment [Unknown]
  - Limb discomfort [Unknown]
  - Acne [Unknown]
  - Hypersensitivity [Unknown]
  - Somnolence [Not Recovered/Not Resolved]
  - Skin disorder [Not Recovered/Not Resolved]
  - Fear [Unknown]
  - Paraesthesia [Unknown]
  - Asthenia [Unknown]
  - Dizziness [Not Recovered/Not Resolved]
  - Pain in extremity [Recovering/Resolving]
  - Arthralgia [Unknown]
  - Nervousness [Unknown]
  - Mass [Unknown]
  - Head discomfort [Unknown]
  - Ageusia [Unknown]
  - Heart rate increased [Unknown]
  - Headache [Recovered/Resolved]
  - Tremor [Unknown]
  - Hypoacusis [Unknown]
  - Constipation [Unknown]
  - Hemiparesis [Unknown]
  - Nausea [Not Recovered/Not Resolved]
  - Peripheral swelling [Unknown]
  - Speech disorder [Unknown]
  - Multiple sclerosis relapse [Unknown]
  - Agitation [Unknown]
  - Pain [Unknown]
  - Concomitant disease aggravated [Recovering/Resolving]

NARRATIVE: CASE EVENT DATE: 20190916
